FAERS Safety Report 7647968-8 (Version None)
Quarter: 2011Q3

REPORT INFORMATION
  Report Type: 
  Country: None (occurrence: None)
  Receive Date: 20110801
  Receipt Date: 20110721
  Transmission Date: 20111222
  Serious: Yes (Other)
  Sender: FDA-Public Use
  Company Number: US-BAYER-2010-007905

PATIENT
  Age: 40 Year
  Sex: Female
  Weight: 72.562 kg

DRUGS (14)
  1. YAZ [Suspect]
     Dosage: UNK
     Dates: start: 20061025
  2. YASMIN [Suspect]
     Indication: PRODUCT USED FOR UNKNOWN INDICATION
     Dosage: UNK
     Dates: start: 20060101, end: 20070101
  3. NAPROXEN [Concomitant]
  4. YASMIN [Suspect]
     Dosage: UNK
     Dates: start: 20061025
  5. IMITREX [Concomitant]
  6. ZYRTEC [Concomitant]
  7. YASMIN [Suspect]
     Dosage: UNK
     Dates: start: 20070124, end: 20070507
  8. ISOMETHEPTENE/DICHLORALPHENAZONE/APAP [Concomitant]
  9. ADVAIR DISKUS 100/50 [Concomitant]
  10. YAZ [Suspect]
     Indication: PRODUCT USED FOR UNKNOWN INDICATION
     Dosage: UNK
     Dates: start: 20060101, end: 20070101
  11. YAZ [Suspect]
     Dosage: UNK
     Dates: start: 20070124, end: 20070507
  12. YASMIN [Suspect]
     Dosage: UNK
     Dates: start: 20031010
  13. YAZ [Suspect]
     Dosage: UNK
     Dates: start: 20031010
  14. ASCORBIC ACID [Concomitant]

REACTIONS (4)
  - PAIN [None]
  - THROMBOSIS [None]
  - CARDIAC DISORDER [None]
  - VENTRICULAR EXTRASYSTOLES [None]
